FAERS Safety Report 7399318-2 (Version None)
Quarter: 2011Q1

REPORT INFORMATION
  Report Type: 
  Country: None (occurrence: None)
  Receive Date: 20110329
  Receipt Date: 20110322
  Transmission Date: 20110831
  Serious: Yes (Hospitalization)
  Sender: FDA-Public Use
  Company Number: 2011SP010577

PATIENT
  Age: 25 Year
  Sex: Female
  Weight: 52 kg

DRUGS (1)
  1. PREGNYL [Suspect]
     Indication: OVULATION INDUCTION
     Dosage: 5000 IU;ONCE
     Dates: start: 20110125

REACTIONS (3)
  - SHOCK [None]
  - BIOPSY SKIN ABNORMAL [None]
  - HYPERSENSITIVITY [None]
